FAERS Safety Report 7024891-3 (Version None)
Quarter: 2010Q4

REPORT INFORMATION
  Report Type: 
  Country: None (occurrence: None)
  Receive Date: 20101001
  Receipt Date: 20100928
  Transmission Date: 20110411
  Serious: Yes (Other)
  Sender: FDA-Public Use
  Company Number: DE-MERCK-1009DEU00120

PATIENT
  Age: 70 Year
  Sex: Male

DRUGS (3)
  1. ZOCOR [Suspect]
     Indication: BLOOD CHOLESTEROL INCREASED
     Route: 048
     Dates: start: 20011201, end: 20100924
  2. METOPROLOL SUCCINATE [Concomitant]
     Route: 048
  3. GODAMED [Concomitant]
     Route: 048

REACTIONS (2)
  - MYALGIA [None]
  - MYOCARDIAL INFARCTION [None]
